FAERS Safety Report 5902334-8 (Version None)
Quarter: 2008Q3

REPORT INFORMATION
  Report Type: 
  Country: None (occurrence: None)
  Receive Date: 20080929
  Receipt Date: 20080912
  Transmission Date: 20090109
  Serious: No
  Sender: FDA-Public Use
  Company Number: US-B.I. PHARMACEUTICALS,INC./RIDGEFIELD-2008-BP-14572BP

PATIENT
  Sex: Female

DRUGS (1)
  1. MELOXICAM [Suspect]
     Dosage: 15MG
     Route: 048

REACTIONS (1)
  - TACHYCARDIA [None]
